FAERS Safety Report 7331837-7 (Version None)
Quarter: 2011Q1

REPORT INFORMATION
  Report Type: 
  Country: None (occurrence: None)
  Receive Date: 20110304
  Receipt Date: 20091013
  Transmission Date: 20110831
  Serious: No
  Sender: FDA-Public Use
  Company Number: US-PFIZER INC-2009283579

PATIENT
  Sex: Female
  Weight: 58.957 kg

DRUGS (1)
  1. DILANTIN [Suspect]
     Indication: CONVULSION
     Dates: start: 19900101

REACTIONS (1)
  - DIZZINESS [None]
